FAERS Safety Report 5293482-7 (Version None)
Quarter: 2007Q2

REPORT INFORMATION
  Report Type: 
  Country: None (occurrence: None)
  Receive Date: 20070411
  Receipt Date: 20070403
  Transmission Date: 20071010
  Serious: Yes (Hospitalization)
  Sender: FDA-Public Use
  Company Number: FR-GLAXOSMITHKLINE-A0620088C

PATIENT
  Age: 50 Year
  Sex: Female
  Weight: 51 kg

DRUGS (1)
  1. LAPATINIB [Suspect]
     Indication: METASTASES TO CENTRAL NERVOUS SYSTEM
     Dosage: 750MG TWICE PER DAY
     Route: 048
     Dates: start: 20060321

REACTIONS (3)
  - APHASIA [None]
  - IATROGENIC INJURY [None]
  - LEUKOENCEPHALOPATHY [None]
